FAERS Safety Report 6667787-9 (Version None)
Quarter: 2010Q2

REPORT INFORMATION
  Report Type: 
  Country: None (occurrence: None)
  Receive Date: 20100405
  Receipt Date: 20100330
  Transmission Date: 20101027
  Serious: Yes (Other)
  Sender: FDA-Public Use
  Company Number: CN-JNJFOC-20100400792

PATIENT

DRUGS (2)
  1. NESIRITIDE [Suspect]
     Indication: CARDIAC FAILURE ACUTE
     Route: 042
  2. NESIRITIDE [Suspect]
     Route: 042

REACTIONS (1)
  - HYPOKALAEMIA [None]
